FAERS Safety Report 5490535-5 (Version None)
Quarter: 2007Q4

REPORT INFORMATION
  Report Type: 
  Country: None (occurrence: None)
  Receive Date: 20071019
  Receipt Date: 20071008
  Transmission Date: 20080405
  Serious: Yes (Hospitalization)
  Sender: FDA-Public Use
  Company Number: US-WYE-H00569707

PATIENT
  Sex: Female
  Weight: 81.72 kg

DRUGS (2)
  1. EFFEXOR XR [Suspect]
     Indication: DEPRESSION
     Dosage: DOSE AND FREQUENCY UNSPECIFIED
     Route: 048
     Dates: start: 20050301, end: 20060301
  2. SEASONALE [Concomitant]
     Indication: CONTRACEPTION
     Dosage: DAILY
     Route: 048

REACTIONS (5)
  - CRYING [None]
  - DRUG WITHDRAWAL SYNDROME [None]
  - INCOHERENT [None]
  - PARAESTHESIA [None]
  - TREMOR [None]
